FAERS Safety Report 6204380-6 (Version None)
Quarter: 2009Q2

REPORT INFORMATION
  Report Type: 
  Country: None (occurrence: None)
  Receive Date: 20090518
  Receipt Date: 20090121
  Transmission Date: 20091009
  Serious: No
  Sender: FDA-Public Use
  Company Number: WAES 0901USA03089

PATIENT
  Age: 79 Year
  Sex: Female

DRUGS (6)
  1. JANUVIA [Suspect]
     Indication: TYPE 2 DIABETES MELLITUS
     Dosage: 100 MG/DAILY/PO
     Route: 048
     Dates: start: 20081216
  2. LASIX [Concomitant]
  3. PRINIVIL [Concomitant]
  4. ZANTAC [Concomitant]
  5. GLIMEPIRIDE [Concomitant]
  6. POTASSIUM CHLORIDE [Concomitant]

REACTIONS (3)
  - HEADACHE [None]
  - POOR QUALITY SLEEP [None]
  - PULMONARY CONGESTION [None]
